FAERS Safety Report 4483938-9 (Version None)
Quarter: 2004Q4

REPORT INFORMATION
  Report Type: 
  Country: None (occurrence: None)
  Receive Date: 20041025
  Receipt Date: 20041012
  Transmission Date: 20050328
  Serious: Yes (Hospitalization)
  Sender: FDA-Public Use
  Company Number: RU-BRISTOL-MYERS SQUIBB COMPANY-12730297

PATIENT
  Age: 57 Year
  Sex: Male
  Weight: 104 kg

DRUGS (6)
  1. IRBESARTAN [Suspect]
     Indication: HYPERTENSION
     Dates: start: 20040525, end: 20040619
  2. BLINDED: PLACEBO [Suspect]
     Indication: HYPERTENSION
     Dates: start: 20040525, end: 20040619
  3. BLINDED: WARFARIN [Suspect]
     Indication: PROPHYLAXIS
     Dates: start: 20040525
  4. AMIODARONE [Concomitant]
     Dates: start: 20040521, end: 20040619
  5. METOPROLOL [Concomitant]
     Dates: start: 20040620
  6. ENALAPRIL MALEATE [Concomitant]
     Dates: start: 20040521

REACTIONS (1)
  - PSORIASIS [None]
